FAERS Safety Report 20170813 (Version 5)
Quarter: 2022Q4

REPORT INFORMATION
  Report Type: Spontaneous
  Country: JP (occurrence: JP)
  Receive Date: 20211210
  Receipt Date: 20221103
  Transmission Date: 20230113
  Serious: Yes (Other)
  Sender: FDA-Public Use
  Company Number: JP-BAYER-2021A262104

PATIENT
  Age: 20 Year
  Sex: Male
  Weight: 60 kg

DRUGS (1)
  1. JIVI [Suspect]
     Active Substance: DAMOCTOCOG ALFA PEGOL
     Indication: Factor VIII deficiency
     Dosage: 3000 IU PER DAY, 2 TIMES PER WEEK FOR REGULAR REPLENISHMENT, TOTAL EXPOSURE 10 DAYS
     Route: 042
     Dates: start: 20211023, end: 20211125

REACTIONS (9)
  - Muscle haemorrhage [Recovered/Resolved]
  - Anti-polyethylene glycol antibody present [None]
  - Arthralgia [None]
  - Drug hypersensitivity [Recovered/Resolved]
  - Peripheral swelling [Recovered/Resolved]
  - Joint range of motion decreased [Recovered/Resolved]
  - Chills [Recovered/Resolved]
  - Hot flush [Recovered/Resolved]
  - Therapeutic product effect incomplete [None]

NARRATIVE: CASE EVENT DATE: 20211031
